FAERS Safety Report 4436530-6 (Version None)
Quarter: 2004Q3

REPORT INFORMATION
  Report Type: 
  Country: None (occurrence: None)
  Receive Date: 20040830
  Receipt Date: 20040611
  Transmission Date: 20050211
  Serious: Yes (Hospitalization)
  Sender: FDA-Public Use
  Company Number: US-BRISTOL-MYERS SQUIBB COMPANY-12613030

PATIENT
  Age: 42 Year
  Sex: Male

DRUGS (9)
  1. ABILIFY [Suspect]
     Indication: PSYCHOTIC DISORDER
     Route: 048
     Dates: start: 20040610, end: 20040610
  2. LEXAPRO [Concomitant]
     Dosage: 10 MGDAY PRIOR TO THE START OF ARIPIPRAZOLE, 20 MG/DAY STARTING ON 10-JUN-2004
  3. HUMALOG [Concomitant]
  4. COREG [Concomitant]
  5. LASIX [Concomitant]
  6. LOTENSIN [Concomitant]
  7. PREVACID [Concomitant]
  8. LOVASTATIN [Concomitant]
  9. ASPIRIN [Concomitant]

REACTIONS (1)
  - RENAL FAILURE [None]
